FAERS Safety Report 18176447 (Version 1)
Quarter: 2020Q3

REPORT INFORMATION
  Report Type: Spontaneous
  Country: IL (occurrence: IL)
  Receive Date: 20200820
  Receipt Date: 20200820
  Transmission Date: 20201103
  Serious: Yes (Hospitalization, Other)
  Sender: FDA-Public Use
  Company Number: IL-CASPER PHARMA LLC-2020CAS000420

PATIENT
  Age: 62 Year
  Sex: Male

DRUGS (3)
  1. PREDNISONE. [Concomitant]
     Active Substance: PREDNISONE
     Dosage: 10 MILLIGRAM EVERY SECOND DAY
     Route: 065
     Dates: start: 198208
  2. AZATHIOPRINE. [Suspect]
     Active Substance: AZATHIOPRINE
     Indication: MYASTHENIA GRAVIS
     Dosage: 100 MILLIGRAM, QD
     Route: 065
     Dates: start: 198303, end: 198506
  3. PREDNISONE. [Concomitant]
     Active Substance: PREDNISONE
     Indication: MYASTHENIA GRAVIS
     Dosage: 75 MILLIGRAM, QD (WITH GRADUAL DOSE REDUCTION)
     Route: 065
     Dates: start: 198208

REACTIONS (3)
  - Product use in unapproved indication [Unknown]
  - Portal hypertension [Recovered/Resolved]
  - Nodular regenerative hyperplasia [Recovered/Resolved]
